FAERS Safety Report 12462040 (Version 1)
Quarter: 2016Q2

REPORT INFORMATION
  Report Type: Spontaneous
  Country: US (occurrence: US)
  Receive Date: 20160613
  Receipt Date: 20160613
  Transmission Date: 20160815
  Serious: Yes (Other)
  Sender: FDA-Public Use
  Company Number: US-ALLERGAN-1659806US

PATIENT
  Age: 39 Year
  Sex: Female
  Weight: 53.52 kg

DRUGS (1)
  1. CRINONE [Suspect]
     Active Substance: PROGESTERONE
     Indication: PREGNANCY
     Dosage: UNK
     Route: 067

REACTIONS (2)
  - Abortion spontaneous [Unknown]
  - Pregnancy [Unknown]
